FAERS Safety Report 5670834-4 (Version None)
Quarter: 2008Q2

REPORT INFORMATION
  Report Type: 
  Country: None (occurrence: None)
  Receive Date: 20080305
  Receipt Date: 20070822
  Transmission Date: 20081010
  Serious: Yes (Other)
  Sender: FDA-Public Use
  Company Number: BDI-010087

PATIENT
  Age: 57 Year
  Sex: Female

DRUGS (3)
  1. ISOVUE-370 [Suspect]
     Indication: COMPUTERISED TOMOGRAM HEAD
     Dosage: 50ML ONCE INTRAVENOUS
     Route: 042
     Dates: start: 20070720, end: 20070720
  2. TOPAMAX [Concomitant]
  3. FLONASE [Concomitant]

REACTIONS (1)
  - ANAPHYLACTOID REACTION [None]
